FAERS Safety Report 23560469 (Version 1)
Quarter: 2024Q1

REPORT INFORMATION
  Report Type: Spontaneous
  Country: JP (occurrence: JP)
  Receive Date: 20240223
  Receipt Date: 20240223
  Transmission Date: 20240410
  Serious: Yes (Hospitalization)
  Sender: FDA-Public Use
  Company Number: JP-Eisai-202314140_LEN-RCC_P_1

PATIENT
  Age: 81 Year
  Sex: Male

DRUGS (3)
  1. LENVIMA [Suspect]
     Active Substance: LENVATINIB
     Indication: Renal cell carcinoma
     Dosage: INITIATED MARCH OF AN UNKNOWN YEAR
     Route: 048
  2. LENVIMA [Suspect]
     Active Substance: LENVATINIB
     Dosage: UNKNOWN DOSE AND FREQUENCY
     Route: 048
  3. KEYTRUDA [Concomitant]
     Active Substance: PEMBROLIZUMAB
     Indication: Renal cell carcinoma
     Dosage: INITIATED MARCH OF AN UNKNOWN YEAR
     Route: 041

REACTIONS (5)
  - Generalised oedema [Unknown]
  - Weight increased [Unknown]
  - Hypertension [Unknown]
  - Platelet count decreased [Unknown]
  - Renal impairment [Unknown]
